FAERS Safety Report 6984987-9 (Version None)
Quarter: 2010Q3

REPORT INFORMATION
  Report Type: 
  Country: None (occurrence: None)
  Receive Date: 20100915
  Receipt Date: 20100810
  Transmission Date: 20110219
  Serious: Yes (Hospitalization, Other)
  Sender: FDA-Public Use
  Company Number: PHHY2010IE10096

PATIENT
  Sex: Male

DRUGS (3)
  1. CLOZARIL [Suspect]
     Indication: SCHIZOPHRENIA
     Dosage: UNK
     Route: 048
     Dates: start: 20050919
  2. CLOZARIL [Suspect]
     Dosage: 100MG MANE, 175MG NOCTE,
  3. EFFEXOR XR [Concomitant]
     Dosage: 150 MG, DAILY

REACTIONS (6)
  - COLOSTOMY [None]
  - CROHN'S DISEASE [None]
  - LEUKOCYTOSIS [None]
  - NEUTROPHIL COUNT INCREASED [None]
  - RECTAL CANCER [None]
  - WHITE BLOOD CELL COUNT INCREASED [None]
